FAERS Safety Report 23255270 (Version 1)
Quarter: 2023Q4

REPORT INFORMATION
  Report Type: Spontaneous
  Country: US (occurrence: US)
  Receive Date: 20231203
  Receipt Date: 20231203
  Transmission Date: 20240110
  Serious: No
  Sender: FDA-Public Use
  Company Number: US-AMNEAL PHARMACEUTICALS-2023-AMRX-02721

PATIENT
  Age: 26 Year
  Sex: Female
  Weight: 58 kg

DRUGS (1)
  1. ISOTRETINOIN [Suspect]
     Active Substance: ISOTRETINOIN
     Indication: Acne
     Dosage: 40 MILLIGRAM, 2 CAPSULES, BID
     Route: 048
     Dates: start: 20221018, end: 20230725

REACTIONS (8)
  - Depressed mood [Unknown]
  - Alopecia [Unknown]
  - Dry skin [Unknown]
  - Lip dry [Unknown]
  - Nausea [Unknown]
  - Sunburn [Unknown]
  - Headache [Unknown]
  - Myalgia [Unknown]

NARRATIVE: CASE EVENT DATE: 20221101
